FAERS Safety Report 8565415 (Version 3)
Quarter: 2013Q2

REPORT INFORMATION
  Report Type: Spontaneous
  Country: TR (occurrence: TR)
  Receive Date: 20120516
  Receipt Date: 20130530
  Transmission Date: 20140414
  Serious: Yes (Other)
  Sender: FDA-Public Use
  Company Number: TR-AMGEN-TURSP2011000366

PATIENT
  Age: 4 Year
  Sex: Male

DRUGS (1)
  1. ENBREL [Suspect]
     Indication: JUVENILE IDIOPATHIC ARTHRITIS
     Dosage: 20 MG, EVERY 3 WEEKS
     Route: 058
     Dates: start: 20100709

REACTIONS (4)
  - Local swelling [Not Recovered/Not Resolved]
  - Ear swelling [Recovered/Resolved]
  - Tuberculosis [Not Recovered/Not Resolved]
  - Injection site pain [Not Recovered/Not Resolved]
